FAERS Safety Report 12921047 (Version 3)
Quarter: 2017Q1

REPORT INFORMATION
  Report Type: Spontaneous
  Country: US (occurrence: US)
  Receive Date: 20161107
  Receipt Date: 20170301
  Transmission Date: 20170428
  Serious: No
  Sender: FDA-Public Use
  Company Number: US-LUNDBECK-DKLU2020085

PATIENT
  Age: 57 Year
  Sex: Male

DRUGS (3)
  1. NORTHERA [Suspect]
     Active Substance: DROXIDOPA
     Indication: PRODUCT USED FOR UNKNOWN INDICATION
  2. NORTHERA [Suspect]
     Active Substance: DROXIDOPA
     Dosage: TITRATION SCHEDULE C (COMPLETE)
     Route: 065
     Dates: start: 20160908
  3. NORTHERA [Suspect]
     Active Substance: DROXIDOPA
     Dosage: TITRATING
     Route: 065

REACTIONS (9)
  - Dysphonia [Recovering/Resolving]
  - Blood pressure decreased [Unknown]
  - Back pain [Unknown]
  - Viral infection [Unknown]
  - Headache [Unknown]
  - Labile blood pressure [Unknown]
  - Chest pain [Unknown]
  - Asthenia [Recovering/Resolving]
  - Muscle spasms [Unknown]

NARRATIVE: CASE EVENT DATE: 20160923
